FAERS Safety Report 5275877-0 (Version None)
Quarter: 2007Q1

REPORT INFORMATION
  Report Type: 
  Country: None (occurrence: None)
  Receive Date: 20061213
  Receipt Date: 20060505
  Transmission Date: 20070707
  Serious: Yes (Hospitalization)
  Sender: FDA-Public Use
  Company Number: 2006UW08889

PATIENT
  Age: 59 Year
  Sex: Male

DRUGS (3)
  1. SEROQUEL [Suspect]
  2. RISPERDAL [Concomitant]
  3. LITHIUM CARBONATE [Concomitant]

REACTIONS (1)
  - CARDIAC FAILURE CONGESTIVE [None]
